FAERS Safety Report 9055823 (Version 4)
Quarter: 2013Q3

REPORT INFORMATION
  Report Type: Spontaneous
  Country: US (occurrence: US)
  Receive Date: 20130206
  Receipt Date: 20130830
  Transmission Date: 20140515
  Serious: Yes (Hospitalization)
  Sender: FDA-Public Use
  Company Number: US-B.I. PHARMACEUTICALS,INC./RIDGEFIELD-2013-BI-02905BP

PATIENT
  Age: 74 Year
  Sex: Female
  Weight: 65.77 kg

DRUGS (7)
  1. PRADAXA [Suspect]
     Indication: ATRIAL FIBRILLATION
     Dosage: 300 MG
     Route: 048
     Dates: start: 201001, end: 201102
  2. VITAMIN D3 [Concomitant]
  3. B COMPLEX [Concomitant]
  4. VITAMIN B12 [Concomitant]
  5. OMEGA 3 [Concomitant]
  6. MULTAQ [Concomitant]
  7. SYNTHROID [Concomitant]

REACTIONS (2)
  - Haemorrhage [Unknown]
  - Haemorrhage [Unknown]
